FAERS Safety Report 6024902-8 (Version None)
Quarter: 2008Q4

REPORT INFORMATION
  Report Type: 
  Country: None (occurrence: None)
  Receive Date: 20081229
  Receipt Date: 20081216
  Transmission Date: 20090506
  Serious: Yes (Other)
  Sender: FDA-Public Use
  Company Number: TRP_06015_2008

PATIENT
  Age: 63 Year
  Sex: Male

DRUGS (4)
  1. RIBAVIRIN [Suspect]
     Indication: HEPATITIS C
     Dosage: 800 MG DAILY, (800 MG DAILY)
  2. RIBAVIRIN [Suspect]
     Indication: HEPATITIS C
     Dosage: 800 MG DAILY, (800 MG DAILY)
  3. PEGINTERFERON ALFA-2A (PEGINTERFERON ALPHA-2A) [Suspect]
     Indication: HEPATITIS C
     Dosage: 180 UG 1X/WEEK, 180 UG 1X/WEEK
  4. PEGINTERFERON ALFA-2A (PEGINTERFERON ALPHA-2A) [Suspect]
     Indication: HEPATITIS C
     Dosage: 180 UG 1X/WEEK, 180 UG 1X/WEEK

REACTIONS (8)
  - ANAEMIA [None]
  - ELECTROCARDIOGRAM CHANGE [None]
  - ELECTROCARDIOGRAM T WAVE INVERSION [None]
  - HEPATITIS C RNA INCREASED [None]
  - MYOCARDIAL ISCHAEMIA [None]
  - POST PROCEDURAL COMPLICATION [None]
  - SYNCOPE [None]
  - WHITE BLOOD CELL COUNT DECREASED [None]
